FAERS Safety Report 14282292 (Version 1)
Quarter: 2017Q4

REPORT INFORMATION
  Report Type: Spontaneous
  Country: None (occurrence: DE)
  Receive Date: 20171213
  Receipt Date: 20171213
  Transmission Date: 20180321
  Serious: Yes (Other)
  Sender: FDA-Public Use
  Company Number: DE-MEDAC PHARMA, INC.-2037122

PATIENT
  Age: 53 Year
  Sex: Female
  Weight: 70 kg

DRUGS (1)
  1. METEX(METHOTREXATE SODIUM) [Suspect]
     Active Substance: METHOTREXATE SODIUM
     Indication: PSORIATIC ARTHROPATHY
     Route: 058
     Dates: start: 201701

REACTIONS (7)
  - Injection site erythema [None]
  - Injection site necrosis [Not Recovered/Not Resolved]
  - Injection site vesicles [None]
  - Injection site urticaria [None]
  - Impaired healing [None]
  - Injection site swelling [None]
  - Injection site plaque [None]

NARRATIVE: CASE EVENT DATE: 201704
